FAERS Safety Report 7784197-1 (Version None)
Quarter: 2011Q3

REPORT INFORMATION
  Report Type: 
  Country: None (occurrence: None)
  Receive Date: 20110928
  Receipt Date: 20110921
  Transmission Date: 20111222
  Serious: Yes (Hospitalization)
  Sender: FDA-Public Use
  Company Number: US-GILEAD-2011-0044121

PATIENT

DRUGS (3)
  1. ADCIRCA [Concomitant]
  2. LETAIRIS [Suspect]
     Indication: PULMONARY HYPERTENSION
     Route: 048
     Dates: start: 20110803, end: 20110901
  3. REMODULIN [Concomitant]

REACTIONS (3)
  - SWELLING [None]
  - RENAL FAILURE [None]
  - UNEVALUABLE EVENT [None]
